FAERS Safety Report 17368125 (Version 1)
Quarter: 2020Q1

REPORT INFORMATION
  Report Type: Report from Study
  Country: KR (occurrence: KR)
  Receive Date: 20200204
  Receipt Date: 20200204
  Transmission Date: 20200409
  Serious: Yes (Hospitalization)
  Sender: FDA-Public Use
  Company Number: KR-DSJP-DSJ-2020-103965AA

PATIENT

DRUGS (9)
  1. EDOXABAN [Suspect]
     Active Substance: EDOXABAN TOSYLATE
     Indication: PRODUCT USED FOR UNKNOWN INDICATION
     Dosage: 30 MG; DAILY
     Route: 048
     Dates: start: 20190219
  2. SOTALON [Concomitant]
     Dosage: 80 MG, UNK
     Route: 048
     Dates: start: 20171018
  3. GASMOTIN [Concomitant]
     Active Substance: MOSAPRIDE CITRATE
     Dosage: 10 MG, UNK
     Route: 048
     Dates: start: 20190806
  4. SINGULAIR [Concomitant]
     Active Substance: MONTELUKAST SODIUM
     Dosage: 10 MG, UNK
     Route: 048
     Dates: start: 20161228
  5. NOLTEC [Concomitant]
     Dosage: 10 MG, UNK
     Route: 048
     Dates: start: 20190219
  6. HERBEN [Concomitant]
     Active Substance: DILTIAZEM HYDROCHLORIDE
     Dosage: 60 MG, UNK
     Route: 048
     Dates: start: 20180907, end: 20190805
  7. DILATREND [Concomitant]
     Active Substance: CARVEDILOL
     Dosage: 6.25 MG, UNK
     Route: 048
     Dates: start: 20161228
  8. PRADAXA [Concomitant]
     Active Substance: DABIGATRAN ETEXILATE MESYLATE
     Dosage: 220 MG, UNK
     Route: 048
     Dates: start: 20161130, end: 20190218
  9. NEUROMED                           /00943401/ [Concomitant]
     Dosage: 1600 MG, UNK
     Route: 048
     Dates: start: 20161228

REACTIONS (3)
  - Liver abscess [Recovered/Resolved]
  - Pulmonary oedema [Unknown]
  - Klebsiella infection [Recovering/Resolving]

NARRATIVE: CASE EVENT DATE: 20191217
